FAERS Safety Report 11589878 (Version 1)
Quarter: 2015Q4

REPORT INFORMATION
  Report Type: Spontaneous
  Country: JP (occurrence: JP)
  Receive Date: 20151002
  Receipt Date: 20151002
  Transmission Date: 20160304
  Serious: Yes (Hospitalization, Other)
  Sender: FDA-Public Use
  Company Number: JP-BAXALTA-2013BAX028989

PATIENT
  Age: 52 Year
  Sex: Male
  Weight: 53.5 kg

DRUGS (4)
  1. ADVATE [Suspect]
     Active Substance: ANTIHEMOPHILIC FACTOR, HUMAN RECOMBINANT
     Dosage: 5000 IU, EVERY 2 DY
     Route: 042
     Dates: start: 20130621, end: 20130626
  2. ADVATE [Suspect]
     Active Substance: ANTIHEMOPHILIC FACTOR, HUMAN RECOMBINANT
     Indication: HAEMORRHAGE PROPHYLAXIS
     Dosage: 2000 IU, 3X A WEEK
     Route: 042
     Dates: start: 20121127, end: 20130620
  3. ADVATE [Suspect]
     Active Substance: ANTIHEMOPHILIC FACTOR, HUMAN RECOMBINANT
     Dosage: 6000 IU, EVERY 2 DY
     Route: 042
     Dates: start: 20130627
  4. FERROMIA [Concomitant]
     Active Substance: FERROUS CITRATE
     Indication: ANAEMIA
     Dosage: 50 MG, 2X A DAY
     Route: 048
     Dates: start: 20130328

REACTIONS (5)
  - Bleeding time prolonged [Recovered/Resolved]
  - Factor VIII inhibition [Not Recovered/Not Resolved]
  - Anaemia [Recovering/Resolving]
  - Post procedural infection [Recovered/Resolved]
  - Enterococcal infection [Recovered/Resolved]

NARRATIVE: CASE EVENT DATE: 201305
